FAERS Safety Report 21006210 (Version 2)
Quarter: 2022Q2

REPORT INFORMATION
  Report Type: Report from Study
  Country: US (occurrence: US)
  Receive Date: 20220624
  Receipt Date: 20220630
  Transmission Date: 20220721
  Serious: Yes (Hospitalization, Other)
  Sender: FDA-Public Use
  Company Number: US-REGENERON PHARMACEUTICALS, INC.-2022-28701

PATIENT
  Age: 69 Year
  Sex: Female

DRUGS (16)
  1. INVESTIGATIONAL PRODUCT [Suspect]
     Active Substance: INVESTIGATIONAL PRODUCT
     Indication: Pancreatic carcinoma
     Dosage: 40 MG, Q3W
     Route: 042
     Dates: start: 20211005, end: 20220118
  2. CEMIPLIMAB [Suspect]
     Active Substance: CEMIPLIMAB
     Indication: Pancreatic carcinoma
     Dosage: 350 MG, Q3W
     Route: 042
     Dates: start: 20211026, end: 20220118
  3. POTASSIUM CHLORIDE [Concomitant]
     Active Substance: POTASSIUM CHLORIDE
     Indication: Hypokalaemia
     Dosage: 20 MEQ, QD
     Route: 048
     Dates: start: 20211130
  4. SODIUM CHLORIDE [Concomitant]
     Active Substance: SODIUM CHLORIDE
     Indication: Blood creatinine increased
     Dosage: 1 L, QD
     Route: 042
     Dates: start: 20220208, end: 20220208
  5. SODIUM CHLORIDE [Concomitant]
     Active Substance: SODIUM CHLORIDE
     Indication: Dehydration
     Dosage: 1 L, OTO
     Route: 042
     Dates: start: 20220208, end: 20220208
  6. LEVOFLOXACIN [Concomitant]
     Active Substance: LEVOFLOXACIN
     Indication: Urinary tract infection
     Dosage: 500 MG, QD
     Route: 048
     Dates: start: 20220210, end: 20220220
  7. SODIUM BICARBONATE [Concomitant]
     Active Substance: SODIUM BICARBONATE
     Indication: Carbon dioxide decreased
     Dosage: 650 MG, TID
     Route: 048
     Dates: start: 20200216
  8. FAMOTIDINE [Concomitant]
     Active Substance: FAMOTIDINE
     Indication: Gastrooesophageal reflux disease
     Dosage: 20 MG, AS NECESSARY (PRN)
     Route: 048
     Dates: start: 2019
  9. ZOLOFT [Concomitant]
     Active Substance: SERTRALINE HYDROCHLORIDE
     Indication: Anxiety
     Dosage: 50 MG, AS NECESSARY (PRN)
     Route: 048
     Dates: start: 2016
  10. PANCRELIPASE [Concomitant]
     Active Substance: PANCRELIPASE
     Indication: Supplementation therapy
     Dosage: 3 CUPS, AS NECESSARY (PRN)
     Route: 048
     Dates: start: 201209
  11. CALCIUM CARBONATE\MAGNESIUM CARBONATE [Concomitant]
     Active Substance: CALCIUM CARBONATE\MAGNESIUM CARBONATE
     Indication: Muscle spasms
     Dosage: 1 DF, AS NECESSARY (PRN)
     Route: 048
     Dates: start: 2012
  12. CENTRUM SILVER                     /02363801/ [Concomitant]
     Indication: Supplementation therapy
     Dosage: 1 DF, QD
     Route: 048
     Dates: start: 20191019
  13. VITAMIN C [Concomitant]
     Active Substance: ASCORBIC ACID
     Indication: Supplementation therapy
     Dosage: 1000 MG, QD
     Route: 048
     Dates: start: 20211019
  14. CRANBERRY                          /01512301/ [Concomitant]
     Indication: Supplementation therapy
     Dosage: 1 DF (PILL), QD
     Route: 048
     Dates: start: 20211019
  15. LANTUS [Concomitant]
     Active Substance: INSULIN GLARGINE
     Indication: Diabetes mellitus
     Dosage: 30 IU, QD
     Route: 058
     Dates: start: 201202
  16. HUMALOG [Concomitant]
     Active Substance: INSULIN LISPRO
     Indication: Diabetes mellitus
     Dosage: 6 IU, BID
     Route: 058
     Dates: start: 201202

REACTIONS (1)
  - Autoimmune nephritis [Recovered/Resolved]

NARRATIVE: CASE EVENT DATE: 20220216
